FAERS Safety Report 12993660 (Version 3)
Quarter: 2017Q2

REPORT INFORMATION
  Report Type: Spontaneous
  Country: US (occurrence: US)
  Receive Date: 20161202
  Receipt Date: 20170406
  Transmission Date: 20170830
  Serious: No
  Sender: FDA-Public Use
  Company Number: US-JNJFOC-20161114851

PATIENT
  Age: 18 Year
  Sex: Male

DRUGS (3)
  1. RISPERDAL [Suspect]
     Active Substance: RISPERIDONE
     Indication: BIPOLAR DISORDER
     Route: 048
     Dates: start: 199710, end: 199801
  2. ZYPREXA [Suspect]
     Active Substance: OLANZAPINE
     Indication: BIPOLAR DISORDER
     Dosage: 0.25 MG - 0.5 MG
     Route: 065
     Dates: start: 199907, end: 199909
  3. RISPERDAL [Suspect]
     Active Substance: RISPERIDONE
     Indication: AGITATION
     Route: 048
     Dates: start: 199710, end: 199801

REACTIONS (2)
  - Paradoxical drug reaction [Unknown]
  - Enuresis [Unknown]

NARRATIVE: CASE EVENT DATE: 19971230
